FAERS Safety Report 18943243 (Version 2)
Quarter: 2021Q1

REPORT INFORMATION
  Report Type: Spontaneous
  Country: KR (occurrence: KR)
  Receive Date: 20210226
  Receipt Date: 20210323
  Transmission Date: 20210420
  Serious: Yes (Other)
  Sender: FDA-Public Use
  Company Number: KR-SUN PHARMACEUTICAL INDUSTRIES LTD-2021R1-282864

PATIENT
  Age: 46 Year
  Sex: Male

DRUGS (3)
  1. LORAZEPAM. [Suspect]
     Active Substance: LORAZEPAM
     Indication: BIPOLAR II DISORDER
     Dosage: UNK
     Route: 065
  2. ARIPIPRAZOLE. [Suspect]
     Active Substance: ARIPIPRAZOLE
     Indication: BIPOLAR II DISORDER
     Dosage: UNK
     Route: 065
  3. LITHIUM. [Suspect]
     Active Substance: LITHIUM
     Indication: BIPOLAR II DISORDER
     Dosage: UNK
     Route: 065

REACTIONS (6)
  - Visual field defect [Not Recovered/Not Resolved]
  - Dysarthria [Not Recovered/Not Resolved]
  - Overdose [Unknown]
  - Quadriplegia [Not Recovered/Not Resolved]
  - Neuroleptic malignant syndrome [Recovered/Resolved]
  - Ataxia [Recovering/Resolving]
